FAERS Safety Report 14854141 (Version 1)
Quarter: 2018Q2

REPORT INFORMATION
  Report Type: Report from Study
  Country: BR (occurrence: BR)
  Receive Date: 20180507
  Receipt Date: 20180507
  Transmission Date: 20180711
  Serious: Yes (Hospitalization)
  Sender: FDA-Public Use
  Company Number: BR-UCBSA-2018018576

PATIENT
  Age: 19 Year
  Sex: Male
  Weight: 55 kg

DRUGS (5)
  1. OMEPRAZOL [Concomitant]
     Active Substance: OMEPRAZOLE
     Indication: DYSPEPSIA
     Dosage: UNK
     Route: 048
  2. CERTOLIZUMAB PEGOL [Suspect]
     Active Substance: CERTOLIZUMAB PEGOL
     Indication: CROHN^S DISEASE
     Dosage: 400 MG, MONTHLY (QM)
     Dates: start: 201708
  3. PANCREATIN [Concomitant]
     Active Substance: PANCRELIPASE
     Indication: FIBROSIS
     Dosage: START DATE: SINCE BIRTH - 18 TABLET DAILY
     Route: 048
  4. INSULIN [Concomitant]
     Active Substance: INSULIN NOS
     Indication: DIABETES MELLITUS
     Dosage: 1 INJECTION IN THE MORNING/ AT LUNCH AND DINNER
     Route: 058
     Dates: start: 2010
  5. NPH INSULIN [Concomitant]
     Active Substance: INSULIN BEEF
     Indication: DIABETES MELLITUS
     Dosage: 1 INJECTION IN THE MORNING AND AT 9PM
     Route: 058
     Dates: start: 2010

REACTIONS (4)
  - Weight decreased [Recovered/Resolved]
  - Intestinal fistula [Unknown]
  - Drug dose omission [Unknown]
  - Enteritis infectious [Recovering/Resolving]

NARRATIVE: CASE EVENT DATE: 201708
